FAERS Safety Report 7069668-8 (Version None)
Quarter: 2010Q4

REPORT INFORMATION
  Report Type: 
  Country: None (occurrence: None)
  Receive Date: 20101028
  Receipt Date: 20100414
  Transmission Date: 20110411
  Serious: No
  Sender: FDA-Public Use
  Company Number: US-WYE-H14606310

PATIENT
  Sex: Female
  Weight: 96.7 kg

DRUGS (7)
  1. EFFEXOR [Suspect]
     Indication: BIPOLAR DISORDER
     Route: 048
  2. ARIPIPRAZOLE [Suspect]
     Indication: BIPOLAR DISORDER
     Route: 048
  3. CLONAZEPAM [Suspect]
     Indication: ANXIETY
     Route: 048
  4. VALPROATE SEMISODIUM [Suspect]
     Indication: BIPOLAR DISORDER
     Route: 048
  5. VARENICLINE [Suspect]
     Indication: EX-TOBACCO USER
     Route: 065
     Dates: start: 20080801, end: 20080101
  6. VARENICLINE [Suspect]
     Dosage: UNKNOWN
     Route: 048
     Dates: start: 20100401
  7. ZIPRASIDONE HCL [Suspect]
     Indication: BIPOLAR DISORDER
     Route: 048

REACTIONS (6)
  - ABNORMAL DREAMS [None]
  - ANXIETY [None]
  - CRYING [None]
  - FORMICATION [None]
  - HALLUCINATION [None]
  - RESTLESSNESS [None]
